FAERS Safety Report 8836651 (Version 2)
Quarter: 2013Q1

REPORT INFORMATION
  Report Type: Spontaneous
  Country: GB (occurrence: None)
  Receive Date: 20121010
  Receipt Date: 20130123
  Transmission Date: 20140127
  Serious: Yes (Other)
  Sender: FDA-Public Use
  Company Number: GER/UKI/12/0026113

PATIENT
  Age: 70 Year
  Sex: Male

DRUGS (7)
  1. CLOPIDOGREL [Suspect]
     Indication: PRODUCT USED FOR UNKNOWN INDICATION
     Dosage: 1IN 1 D
     Dates: start: 201110
  2. DOXAZOSIN [Suspect]
     Indication: PRODUCT USED FOR UNKNOWN INDICATION
     Dosage: 1IN 1 D
     Dates: start: 200903
  3. LANSOPRAZOLE (LANSOPRAZOLE) [Suspect]
     Dates: start: 20120903
  4. ASPIRIN (ACETYLSALICYLIC ACID) [Concomitant]
  5. AMLODIPINE (AMLODIPINE) [Concomitant]
  6. ATORVASTATIN (ATORVASTATIN) [Concomitant]
  7. ENALAPRIL(ENALAPRIL) [Concomitant]

REACTIONS (7)
  - Drug interaction [None]
  - Drug ineffective [None]
  - Nocturia [None]
  - Contusion [None]
  - Epistaxis [None]
  - Bleeding time prolonged [None]
  - Wound haemorrhage [None]
